FAERS Safety Report 11032201 (Version 2)
Quarter: 2015Q2

REPORT INFORMATION
  Report Type: Spontaneous
  Country: US (occurrence: US)
  Receive Date: 20150415
  Receipt Date: 20150525
  Transmission Date: 20150821
  Serious: No
  Sender: FDA-Public Use
  Company Number: US-JNJFOC-20130713952

PATIENT
  Age: 75 Year
  Sex: Female
  Weight: 85.73 kg

DRUGS (8)
  1. CALCITONIN [Concomitant]
     Active Substance: CALCITONIN
     Dosage: 3.7
     Route: 045
     Dates: start: 2010
  2. XARELTO [Suspect]
     Active Substance: RIVAROXABAN
     Indication: PULMONARY EMBOLISM
     Dosage: 20 MG TABLET ONCE A DAY
     Route: 048
     Dates: start: 20130716
  3. NIZATIDINE. [Concomitant]
     Active Substance: NIZATIDINE
     Route: 048
     Dates: start: 2010
  4. VITAMIN D [Concomitant]
     Active Substance: CHOLECALCIFEROL
     Dosage: 3.7
     Route: 048
     Dates: start: 2010
  5. LOSARTAN POTASSIUM. [Concomitant]
     Active Substance: LOSARTAN POTASSIUM
     Route: 048
     Dates: start: 2010
  6. GLUCOSAMINE [Concomitant]
     Active Substance: GLUCOSAMINE
     Dosage: 3.7
     Route: 048
     Dates: start: 2010
  7. CARVEDILOL. [Concomitant]
     Active Substance: CARVEDILOL
     Route: 048
     Dates: start: 2010
  8. VITAMIN B12 [Concomitant]
     Active Substance: CYANOCOBALAMIN
     Dosage: 3.7
     Route: 048
     Dates: start: 2010

REACTIONS (1)
  - Pre-existing condition improved [Unknown]

NARRATIVE: CASE EVENT DATE: 201307
